FAERS Safety Report 13402594 (Version 1)
Quarter: 2017Q2

REPORT INFORMATION
  Report Type: Spontaneous
  Country: DE (occurrence: DE)
  Receive Date: 20170404
  Receipt Date: 20170404
  Transmission Date: 20170830
  Serious: Yes (Other)
  Sender: FDA-Public Use
  Company Number: DE-BAYER-2017-061908

PATIENT
  Sex: Female

DRUGS (1)
  1. PETIBELLE [Suspect]
     Active Substance: DROSPIRENONE\ETHINYL ESTRADIOL
     Indication: CONTRACEPTION
     Dosage: UNK
     Route: 048
     Dates: start: 2007, end: 201701

REACTIONS (5)
  - Abnormal withdrawal bleeding [Not Recovered/Not Resolved]
  - Depressed mood [Unknown]
  - Diabetes mellitus [Unknown]
  - Withdrawal syndrome [Unknown]
  - Malaise [Unknown]
